FAERS Safety Report 22774782 (Version 9)
Quarter: 2024Q4

REPORT INFORMATION
  Report Type: Spontaneous
  Country: US (occurrence: US)
  Receive Date: 20230802
  Receipt Date: 20241210
  Transmission Date: 20250115
  Serious: Yes (Hospitalization)
  Sender: CIPLA
  Company Number: US-CIPLA LTD.-2023US03020

PATIENT

DRUGS (13)
  1. SAJAZIR [Suspect]
     Active Substance: ICATIBANT ACETATE
     Indication: Complement factor abnormal
     Dosage: 30 MILLIGRAMS, PRN (1^S- 30 MG PFS 3 ML- 1/PK)
     Route: 058
     Dates: start: 20230628
  2. SAJAZIR [Suspect]
     Active Substance: ICATIBANT ACETATE
     Dosage: 30 MILLIGRAMS, PRN (1^S- 30 MG PFS 3 ML- 1/PK)
     Route: 058
     Dates: start: 20230629
  3. SAJAZIR [Suspect]
     Active Substance: ICATIBANT ACETATE
     Dosage: 30 MILLIGRAMS, PRN (1^S- 30 MG PFS 3 ML- 1/PK)
     Route: 058
     Dates: start: 20230629
  4. HYDROCHLOROTHIAZIDE [Concomitant]
     Active Substance: HYDROCHLOROTHIAZIDE
     Indication: Product used for unknown indication
     Dosage: UNK
     Route: 065
  5. CETIRIZINE HYDROCHLORIDE [Concomitant]
     Active Substance: CETIRIZINE HYDROCHLORIDE
     Indication: Product used for unknown indication
     Dosage: UNK
     Route: 065
  6. CINRYZE [Concomitant]
     Active Substance: HUMAN C1-ESTERASE INHIBITOR
     Indication: Product used for unknown indication
     Dosage: UNK
     Route: 065
  7. AZATHIOPRINE [Concomitant]
     Active Substance: AZATHIOPRINE
     Indication: Product used for unknown indication
     Dosage: UNK
     Route: 065
  8. OMEPRAZOLE [Concomitant]
     Active Substance: OMEPRAZOLE
     Indication: Product used for unknown indication
     Dosage: UNK
     Route: 065
  9. METFORMIN HYDROCHLORIDE [Concomitant]
     Active Substance: METFORMIN HYDROCHLORIDE
     Indication: Product used for unknown indication
     Dosage: UNK
     Route: 065
  10. RUCONEST [Concomitant]
     Active Substance: CONESTAT ALFA
     Indication: Product used for unknown indication
     Dosage: UNK
     Route: 065
  11. BONAZOL [Concomitant]
     Indication: Product used for unknown indication
     Dosage: UNK
     Route: 065
  12. DANAZOL [Concomitant]
     Active Substance: DANAZOL
     Indication: Product used for unknown indication
     Dosage: UNK
     Route: 065
  13. CITALOPRAM HYDROBROMIDE [Concomitant]
     Active Substance: CITALOPRAM HYDROBROMIDE
     Indication: Product used for unknown indication
     Dosage: UNK
     Route: 065

REACTIONS (3)
  - Hereditary angioedema [Unknown]
  - Headache [Unknown]
  - Injection site pain [Unknown]

NARRATIVE: CASE EVENT DATE: 20230101
